FAERS Safety Report 11855370 (Version 1)
Quarter: 2015Q4

REPORT INFORMATION
  Report Type: Spontaneous
  Country: TN (occurrence: TN)
  Receive Date: 20151221
  Receipt Date: 20151221
  Transmission Date: 20160305
  Serious: Yes (Other)
  Sender: FDA-Public Use
  Company Number: TN-MYLANLABS-2015M1045714

PATIENT

DRUGS (3)
  1. CISPLATIN. [Suspect]
     Active Substance: CISPLATIN
     Indication: TERATOMA
     Dosage: 20 MG/M2 ON DAYS 1-5, EVERY 21 DAYS
     Route: 065
  2. BLEOMYCIN [Suspect]
     Active Substance: BLEOMYCIN SULFATE
     Indication: TERATOMA
     Dosage: 30MG ON DAYS 1, 8 AND 15, EVERY 21 DAYS
     Route: 065
  3. ETOPOSIDE. [Suspect]
     Active Substance: ETOPOSIDE
     Indication: TERATOMA
     Dosage: 100 MG/M2 ON DAYS 1-5
     Route: 065

REACTIONS (1)
  - Superior sagittal sinus thrombosis [Recovered/Resolved]
